FAERS Safety Report 13485456 (Version 2)
Quarter: 2017Q3

REPORT INFORMATION
  Report Type: Spontaneous
  Country: US (occurrence: US)
  Receive Date: 20170426
  Receipt Date: 20170803
  Transmission Date: 20171127
  Serious: Yes (Hospitalization)
  Sender: FDA-Public Use
  Company Number: US-ASTRAZENECA-2017SE41666

PATIENT
  Age: 22355 Day
  Sex: Female
  Weight: 145.2 kg

DRUGS (1)
  1. SYMBICORT [Suspect]
     Active Substance: BUDESONIDE\FORMOTEROL FUMARATE DIHYDRATE
     Indication: ASTHMA
     Dosage: 160/4.5 MCG, 2 PUFFS TWICE DAILY
     Route: 055
     Dates: start: 2006

REACTIONS (7)
  - Acute kidney injury [Not Recovered/Not Resolved]
  - Osteolysis [Not Recovered/Not Resolved]
  - Staphylococcal sepsis [Recovering/Resolving]
  - Drug dose omission [Unknown]
  - Product quality issue [Unknown]
  - Staphylococcal infection [Recovering/Resolving]
  - Gait inability [Not Recovered/Not Resolved]

NARRATIVE: CASE EVENT DATE: 20170416
